FAERS Safety Report 8268844-6 (Version None)
Quarter: 2012Q2

REPORT INFORMATION
  Report Type: 
  Country: None (occurrence: None)
  Receive Date: 20120409
  Receipt Date: 20120409
  Transmission Date: 20120825
  Serious: Yes (Life-Threatening)
  Sender: FDA-Public Use
  Company Number: None

PATIENT
  Sex: Female
  Weight: 97.068 kg

DRUGS (2)
  1. HUMALOG MIX 75/25 [Suspect]
     Indication: DIABETES MELLITUS
     Dosage: 35 UNITS
  2. HUMALOG MIX 75/25 [Concomitant]

REACTIONS (2)
  - BLOOD GLUCOSE DECREASED [None]
  - MIDDLE INSOMNIA [None]
